FAERS Safety Report 9700055 (Version 1)
Quarter: 2013Q4

REPORT INFORMATION
  Report Type: Spontaneous
  Country: US (occurrence: US)
  Receive Date: 20131121
  Receipt Date: 20131121
  Transmission Date: 20140711
  Serious: Yes (Other)
  Sender: FDA-Public Use
  Company Number: US-AMGEN-USASP2013080920

PATIENT
  Sex: Female

DRUGS (1)
  1. XGEVA [Suspect]
     Indication: SMALL CELL LUNG CANCER
     Dosage: 120 MG, Q4WK
     Route: 065

REACTIONS (1)
  - Hypocalcaemia [Unknown]
